FAERS Safety Report 23242129 (Version 1)
Quarter: 2023Q4

REPORT INFORMATION
  Report Type: Spontaneous
  Country: CH (occurrence: CH)
  Receive Date: 20231129
  Receipt Date: 20231129
  Transmission Date: 20240110
  Serious: Yes (Other)
  Sender: FDA-Public Use
  Company Number: CH-MYLANLABS-2023M1125011

PATIENT
  Age: 46 Year
  Sex: Female

DRUGS (1)
  1. IMATINIB [Suspect]
     Active Substance: IMATINIB
     Indication: Fibrous histiocytoma
     Dosage: UNK
     Route: 065

REACTIONS (3)
  - Neoplasm progression [Unknown]
  - Tumour haemorrhage [Unknown]
  - Drug ineffective [Unknown]
